FAERS Safety Report 12115657 (Version 1)
Quarter: 2016Q1

REPORT INFORMATION
  Report Type: Spontaneous
  Country: IT (occurrence: IT)
  Receive Date: 20160225
  Receipt Date: 20160225
  Transmission Date: 20160526
  Serious: Yes (Hospitalization)
  Sender: FDA-Public Use
  Company Number: IT-PFIZER INC-2016117760

PATIENT
  Age: 93 Year
  Sex: Female

DRUGS (4)
  1. SYCREST [Suspect]
     Active Substance: ASENAPINE MALEATE
     Dosage: 5 MG, DAILY
     Route: 048
     Dates: start: 20150720, end: 20150724
  2. TALOFEN [Suspect]
     Active Substance: PROMAZINE HYDROCHLORIDE
     Dosage: 10 GTT, DAILY
     Route: 048
     Dates: start: 20150101, end: 20150724
  3. GABAPENTIN. [Suspect]
     Active Substance: GABAPENTIN
     Dosage: 1200 MG, DAILY
     Route: 048
     Dates: start: 20150101, end: 20150724
  4. TRITTICO [Suspect]
     Active Substance: TRAZODONE HYDROCHLORIDE
     Dosage: 30 GTT, DAILY
     Route: 048
     Dates: start: 20150101, end: 20150724

REACTIONS (5)
  - Aggression [Unknown]
  - Catatonia [Recovering/Resolving]
  - Hypotension [Recovering/Resolving]
  - Agitation [Unknown]
  - Psychomotor hyperactivity [Unknown]

NARRATIVE: CASE EVENT DATE: 20150724
